FAERS Safety Report 25875272 (Version 1)
Quarter: 2025Q4

REPORT INFORMATION
  Report Type: Spontaneous
  Country: US (occurrence: US)
  Receive Date: 20251003
  Receipt Date: 20251003
  Transmission Date: 20260118
  Serious: Yes (Congenital Anomaly)
  Sender: TEVA
  Company Number: US-TEVA-VS-3375651

PATIENT
  Sex: Female
  Weight: 2.594 kg

DRUGS (1)
  1. BACLOFEN [Suspect]
     Active Substance: BACLOFEN
     Indication: Cerebral palsy
     Dosage: PUMP
     Route: 064

REACTIONS (3)
  - Acoustic stimulation tests abnormal [Unknown]
  - Foetal exposure during pregnancy [Unknown]
  - Congenital hearing disorder [Unknown]
